FAERS Safety Report 5629491-5 (Version None)
Quarter: 2008Q1

REPORT INFORMATION
  Report Type: 
  Country: None (occurrence: None)
  Receive Date: 20080215
  Receipt Date: 20080215
  Transmission Date: 20080703
  Serious: Yes (Hospitalization)
  Sender: FDA-Public Use
  Company Number: None

PATIENT
  Age: 64 Year
  Sex: Female
  Weight: 57.1532 kg

DRUGS (1)
  1. DILANTIN [Suspect]
     Indication: CONVULSION
     Dosage: 200MG QHS PO DOSE REDUCED
     Route: 048
     Dates: start: 20070625, end: 20080104

REACTIONS (2)
  - ANTICONVULSANT DRUG LEVEL INCREASED [None]
  - DYSARTHRIA [None]
